APPROVED DRUG PRODUCT: PHENTERMINE RESIN 30
Active Ingredient: PHENTERMINE RESIN COMPLEX
Strength: EQ 30MG BASE
Dosage Form/Route: CAPSULE, EXTENDED RELEASE;ORAL
Application: A089120 | Product #001
Applicant: QUANTUM PHARMICS LTD
Approved: Feb 4, 1988 | RLD: No | RS: No | Type: DISCN